FAERS Safety Report 7046534-5 (Version None)
Quarter: 2010Q4

REPORT INFORMATION
  Report Type: 
  Country: None (occurrence: None)
  Receive Date: 20101015
  Receipt Date: 20101004
  Transmission Date: 20110411
  Serious: Yes (Hospitalization)
  Sender: FDA-Public Use
  Company Number: US-BIOGENIDEC-2009BI000377

PATIENT
  Age: 36 Year
  Sex: Female
  Weight: 49 kg

DRUGS (4)
  1. TYSABRI [Suspect]
     Indication: MULTIPLE SCLEROSIS
     Route: 042
     Dates: start: 20071219
  2. VICODIN [Concomitant]
     Indication: BACK PAIN
  3. VICODIN [Concomitant]
     Indication: MIGRAINE
  4. PROZAC [Concomitant]
     Indication: MAJOR DEPRESSION

REACTIONS (12)
  - FALL [None]
  - FUNGAL INFECTION [None]
  - GASTRIC ULCER HAEMORRHAGE [None]
  - HAIR DISORDER [None]
  - INFLUENZA [None]
  - NASAL DISCOMFORT [None]
  - ORAL DISCOMFORT [None]
  - PYREXIA [None]
  - RASH VESICULAR [None]
  - STREPTOCOCCAL INFECTION [None]
  - TOOTH DISORDER [None]
  - VIRAL INFECTION [None]
